FAERS Safety Report 9667768 (Version 1)
Quarter: 2013Q4

REPORT INFORMATION
  Report Type: Spontaneous
  Country: CA (occurrence: CA)
  Receive Date: 20131104
  Receipt Date: 20131104
  Transmission Date: 20140711
  Serious: Yes (Other)
  Sender: FDA-Public Use
  Company Number: CA-PFIZER INC-2013311396

PATIENT
  Sex: Female

DRUGS (2)
  1. PRISTIQ [Suspect]
     Dosage: 50 MG, UNK
     Dates: start: 2011
  2. PRISTIQ [Suspect]
     Dosage: 100 MG, UNK

REACTIONS (2)
  - Nephrolithiasis [Unknown]
  - Pyrexia [Unknown]
